FAERS Safety Report 23819964 (Version 1)
Quarter: 2024Q2

REPORT INFORMATION
  Report Type: Spontaneous
  Country: PL (occurrence: PL)
  Receive Date: 20240506
  Receipt Date: 20240506
  Transmission Date: 20240716
  Serious: Yes (Other)
  Sender: FDA-Public Use
  Company Number: None

PATIENT
  Age: 46 Year
  Sex: Male
  Weight: 68 kg

DRUGS (3)
  1. OXALIPLATIN [Suspect]
     Active Substance: OXALIPLATIN
     Indication: Small intestine carcinoma
     Dosage: OXALIPLATIN ACCORD 100MG, LOT: PX06227, EXP: 31/10/2021;
     Dates: start: 20200729
  2. FLUOROURACIL [Suspect]
     Active Substance: FLUOROURACIL
     Indication: Small intestine carcinoma
     Dosage: FLUOROURACIL MEDAC 5000MG, LOT: I190523AA, EXP: 30/09/2021
     Dates: start: 20200729
  3. LEVOLEUCOVORIN [Concomitant]
     Active Substance: LEVOLEUCOVORIN
     Dosage: LEVOFOLIC 200MG, LOT: I190523AA, EXP: 30/09/2021

REACTIONS (2)
  - Neutropenia [Recovering/Resolving]
  - Hepatic failure [Recovering/Resolving]

NARRATIVE: CASE EVENT DATE: 20200818
